FAERS Safety Report 15286567 (Version 2)
Quarter: 2018Q3

REPORT INFORMATION
  Report Type: Spontaneous
  Country: CH (occurrence: CH)
  Receive Date: 20180816
  Receipt Date: 20180904
  Transmission Date: 20181010
  Serious: Yes (Other)
  Sender: FDA-Public Use
  Company Number: PHHY2018CH070742

PATIENT

DRUGS (1)
  1. SANDOSTATIN LAR DEPOT [Suspect]
     Active Substance: OCTREOTIDE ACETATE
     Indication: PANCREATIC NEUROENDOCRINE TUMOUR
     Dosage: 30 MG, QMO (MONTHLY DOSE)
     Route: 030
     Dates: start: 201410

REACTIONS (2)
  - Muscle spasms [Recovered/Resolved]
  - Cholangitis infective [Unknown]

NARRATIVE: CASE EVENT DATE: 201606
